FAERS Safety Report 8747293 (Version 1)
Quarter: 2012Q4

REPORT INFORMATION
  Report Type: 
  Country: IT (occurrence: IT)
  Receive Date: 20120903
  Receipt Date: 20120903
  Transmission Date: 20130627
  Serious: Yes (Hospitalization)
  Sender: FDA-Public Use
  Company Number: IT-PFIZER INC-2012206884

PATIENT
  Age: 64 Year
  Sex: Male

DRUGS (1)
  1. CISPLATIN [Suspect]
     Indication: HETEROPLASIA
     Dosage: 1 dosage unit, total dose
     Route: 042
     Dates: start: 20120616, end: 20120616

REACTIONS (5)
  - Asthenia [Unknown]
  - Chest pain [Unknown]
  - Malaise [Unknown]
  - Vomiting [Unknown]
  - Decreased appetite [Unknown]
